FAERS Safety Report 5412567-5 (Version None)
Quarter: 2007Q3

REPORT INFORMATION
  Report Type: 
  Country: None (occurrence: None)
  Receive Date: 20070713
  Receipt Date: 20070420
  Transmission Date: 20080115
  Serious: Yes (Hospitalization)
  Sender: FDA-Public Use
  Company Number: US-JNJFOC-20060904549

PATIENT
  Age: 41 Year
  Sex: Female
  Weight: 49.8957 kg

DRUGS (1)
  1. ORTHO EVRA [Suspect]
     Indication: DYSMENORRHOEA
     Dosage: TRANSDERMAL
     Route: 062
     Dates: start: 20020501, end: 20050627

REACTIONS (1)
  - PULMONARY EMBOLISM [None]
